FAERS Safety Report 9895898 (Version 2)
Quarter: 2014Q1

REPORT INFORMATION
  Report Type: Spontaneous
  Country: US (occurrence: US)
  Receive Date: 20140213
  Receipt Date: 20140213
  Transmission Date: 20141002
  Serious: Yes (Life-Threatening, Hospitalization)
  Sender: FDA-Public Use
  Company Number: US-BRISTOL-MYERS SQUIBB COMPANY-17305061

PATIENT
  Age: 53 Year
  Sex: Female
  Weight: 113.38 kg

DRUGS (1)
  1. ORENCIA [Suspect]
     Indication: RHEUMATOID ARTHRITIS
     Dosage: LAST INJ:15FEB2013
     Route: 058
     Dates: start: 20130118

REACTIONS (4)
  - Pneumonia [Unknown]
  - Influenza [Unknown]
  - Dizziness [Unknown]
  - Malaise [Unknown]
